FAERS Safety Report 20902934 (Version 1)
Quarter: 2022Q2

REPORT INFORMATION
  Report Type: Spontaneous
  Country: ES (occurrence: ES)
  Receive Date: 20220601
  Receipt Date: 20220601
  Transmission Date: 20220721
  Serious: Yes (Life-Threatening, Hospitalization)
  Sender: FDA-Public Use
  Company Number: None

PATIENT
  Age: 45 Year
  Sex: Female

DRUGS (1)
  1. MIRENA [Suspect]
     Active Substance: LEVONORGESTREL
     Indication: Uterine leiomyoma
     Dosage: 20?G/DAY
     Route: 015
     Dates: start: 20210715

REACTIONS (1)
  - Coeliac artery aneurysm [Not Recovered/Not Resolved]

NARRATIVE: CASE EVENT DATE: 20220214
